FAERS Safety Report 24583797 (Version 1)
Quarter: 2024Q4

REPORT INFORMATION
  Report Type: Report from Study
  Country: CN (occurrence: CN)
  Receive Date: 20241106
  Receipt Date: 20241106
  Transmission Date: 20250114
  Serious: Yes (Other)
  Sender: ROCHE
  Company Number: CN-ROCHE-10000121276

PATIENT
  Age: 74 Year
  Sex: Female

DRUGS (2)
  1. RITUXIMAB [Suspect]
     Active Substance: RITUXIMAB
     Indication: Diffuse large B-cell lymphoma
     Route: 065
     Dates: start: 20231011
  2. COLUMVI [Suspect]
     Active Substance: GLOFITAMAB-GXBM
     Indication: Diffuse large B-cell lymphoma
     Dosage: THERAPY STARTED ON 16-OCT-2024
     Route: 042

REACTIONS (19)
  - Chronic hepatitis B [Unknown]
  - Myelosuppression [Recovering/Resolving]
  - White blood cell count decreased [Recovering/Resolving]
  - Neutrophil count decreased [Recovering/Resolving]
  - Granulocyte count decreased [Recovering/Resolving]
  - Mouth ulceration [Recovering/Resolving]
  - Diarrhoea [Recovering/Resolving]
  - Cerebral small vessel ischaemic disease [Unknown]
  - Dysarthria [Unknown]
  - Lymphadenopathy [Unknown]
  - Brain oedema [Unknown]
  - Intracranial mass [Unknown]
  - Central nervous system lymphoma [Unknown]
  - Splenomegaly [Unknown]
  - Central nervous system lesion [Unknown]
  - Sleep disorder [Unknown]
  - Constipation [Unknown]
  - Retroperitoneal lymphadenopathy [Unknown]
  - Brain oedema [Unknown]

NARRATIVE: CASE EVENT DATE: 20231121
